FAERS Safety Report 6335661-3 (Version None)
Quarter: 2009Q3

REPORT INFORMATION
  Report Type: 
  Country: None (occurrence: None)
  Receive Date: 20090831
  Receipt Date: 20090817
  Transmission Date: 20100115
  Serious: Yes (Other)
  Sender: FDA-Public Use
  Company Number: US-JNJCH-2009022154

PATIENT
  Sex: Female

DRUGS (1)
  1. SUDAFED 24 HOUR TABLETS [Suspect]
     Indication: DRUG USE FOR UNKNOWN INDICATION
     Dosage: TEXT:ONE TABLET ONCE A DAY
     Route: 048

REACTIONS (1)
  - NEPHROLITHIASIS [None]
